FAERS Safety Report 16709192 (Version 2)
Quarter: 2019Q3

REPORT INFORMATION
  Report Type: Report from Study
  Country: US (occurrence: US)
  Receive Date: 20190816
  Receipt Date: 20190902
  Transmission Date: 20191004
  Serious: Yes (Other)
  Sender: FDA-Public Use
  Company Number: US-AGIOS-1908US01327

PATIENT

DRUGS (2)
  1. SYNVISC [Concomitant]
     Active Substance: HYLAN G-F 20
     Indication: PRODUCT USED FOR UNKNOWN INDICATION
  2. TIBSOVO [Suspect]
     Active Substance: IVOSIDENIB
     Indication: MYELOPROLIFERATIVE NEOPLASM
     Dosage: 250 MILLIGRAM, QD
     Route: 048
     Dates: start: 20190101

REACTIONS (6)
  - Arthropathy [Unknown]
  - Blood creatinine increased [Unknown]
  - Off label use [Unknown]
  - Renal disorder [Unknown]
  - Blood uric acid increased [Unknown]
  - Haemoglobin decreased [Unknown]

NARRATIVE: CASE EVENT DATE: 2019
